FAERS Safety Report 17615435 (Version 1)
Quarter: 2020Q2

REPORT INFORMATION
  Report Type: Spontaneous
  Country: US (occurrence: US)
  Receive Date: 20200402
  Receipt Date: 20200402
  Transmission Date: 20200713
  Serious: Yes (Other)
  Sender: FDA-Public Use
  Company Number: US-PFIZER INC-2020136187

PATIENT
  Age: 67 Year
  Sex: Female
  Weight: 56.7 kg

DRUGS (1)
  1. DILANTIN [Suspect]
     Active Substance: PHENYTOIN
     Indication: SEIZURE
     Dosage: 100 MG, 3X/DAY
     Route: 048
     Dates: start: 199111

REACTIONS (6)
  - Neoplasm recurrence [Unknown]
  - Hypoglycaemia [Unknown]
  - Movement disorder [Unknown]
  - Fatigue [Unknown]
  - Benign neoplasm [Unknown]
  - Anticonvulsant drug level abnormal [Unknown]
